FAERS Safety Report 17436800 (Version 1)
Quarter: 2020Q1

REPORT INFORMATION
  Report Type: Spontaneous
  Country: US (occurrence: US)
  Receive Date: 20200219
  Receipt Date: 20200219
  Transmission Date: 20200409
  Serious: Yes (Other)
  Sender: FDA-Public Use
  Company Number: US-SA-2020SA040185

PATIENT
  Age: 43 Year
  Sex: Female
  Weight: 98.86 kg

DRUGS (11)
  1. NEOSAR [Concomitant]
     Active Substance: CYCLOPHOSPHAMIDE
     Indication: BREAST CANCER FEMALE
  2. MENTHOL. [Concomitant]
     Active Substance: MENTHOL
     Indication: MYALGIA
     Dosage: APPLY A SMALL AMOUNT TO THE SKIN EVERY DAY FOR MUSCLE PAIN
     Dates: start: 20100406
  3. DEXAMETHASONE. [Concomitant]
     Active Substance: DEXAMETHASONE
     Indication: CHEMOTHERAPY
     Dosage: 1 DF, BID
     Dates: start: 20100405, end: 20110406
  4. TAXOTERE [Suspect]
     Active Substance: DOCETAXEL
     Indication: BREAST CANCER FEMALE
     Dosage: UNK UNK, 1X
     Dates: start: 20100408, end: 20100408
  5. IBUPROFEN. [Concomitant]
     Active Substance: IBUPROFEN
     Indication: PAIN
     Dosage: 1 DF, TID
     Dates: start: 20100406
  6. TRIPROLIDINE [Concomitant]
     Active Substance: TRIPROLIDINE
     Dosage: UNK
     Dates: start: 20100406, end: 20110407
  7. ADRIAMYCIN [Concomitant]
     Active Substance: DOXORUBICIN HYDROCHLORIDE
     Indication: BREAST CANCER FEMALE
  8. LORATADINE. [Concomitant]
     Active Substance: LORATADINE
     Indication: HYPERSENSITIVITY
     Dosage: 1 DF, QD
     Dates: start: 20100522, end: 20110407
  9. FLUNISOLIDE. [Concomitant]
     Active Substance: FLUNISOLIDE
     Indication: NASAL CONGESTION
     Dosage: UNK UNK, BID2 SPRAYS INTO EACH NOSTRIL TWICE A DAY
     Dates: start: 20100406
  10. OMEPRAZOLE. [Concomitant]
     Active Substance: OMEPRAZOLE
     Dosage: UNK
     Dates: start: 20100406
  11. PROCHLORPERAZINE. [Concomitant]
     Active Substance: PROCHLORPERAZINE
     Indication: NAUSEA
     Dosage: TAKE ONE TABLET BY MOUTH EVERY 6 HOURS AS NEEDED
     Dates: start: 20100405, end: 20110406

REACTIONS (1)
  - Alopecia [Recovering/Resolving]

NARRATIVE: CASE EVENT DATE: 201012
